FAERS Safety Report 25729554 (Version 1)
Quarter: 2025Q3

REPORT INFORMATION
  Report Type: Spontaneous
  Country: CN (occurrence: CN)
  Receive Date: 20250827
  Receipt Date: 20250827
  Transmission Date: 20251020
  Serious: Yes (Hospitalization, Other)
  Sender: ANI
  Company Number: None

PATIENT
  Age: 18 Year
  Sex: Female
  Weight: 59 kg

DRUGS (2)
  1. FLUVOXAMINE MALEATE [Suspect]
     Active Substance: FLUVOXAMINE MALEATE
     Indication: Depression
     Route: 048
     Dates: start: 20250805, end: 20250813
  2. Suo Qing Ning [Concomitant]
     Indication: Depression
     Route: 048
     Dates: start: 20250805, end: 20250813

REACTIONS (7)
  - Self-destructive behaviour [Unknown]
  - Somatic symptom disorder [Recovering/Resolving]
  - Gait disturbance [Unknown]
  - Restlessness [Recovering/Resolving]
  - Feeling jittery [Recovering/Resolving]
  - Asthenia [Unknown]
  - Headache [Unknown]

NARRATIVE: CASE EVENT DATE: 20250812
